FAERS Safety Report 19495553 (Version 2)
Quarter: 2021Q3

REPORT INFORMATION
  Report Type: Spontaneous
  Country: CN (occurrence: CN)
  Receive Date: 20210706
  Receipt Date: 20210723
  Transmission Date: 20211014
  Serious: Yes (Other)
  Sender: FDA-Public Use
  Company Number: CN-ACCORD-230560

PATIENT
  Age: 73 Year
  Sex: Male

DRUGS (4)
  1. OXALIPLATIN. [Suspect]
     Active Substance: OXALIPLATIN
     Indication: GASTRIC CANCER
     Dosage: ONCE EVERY 3 WEEKS
     Dates: start: 201902, end: 201904
  2. GEMCITABINE/GEMCITABINE HYDROCHLORIDE [Suspect]
     Active Substance: GEMCITABINE\GEMCITABINE HYDROCHLORIDE
     Indication: GASTRIC CANCER
     Dosage: ONCE?WEEKLY
     Dates: start: 201902, end: 201904
  3. TRASTUZUMAB. [Concomitant]
     Active Substance: TRASTUZUMAB
     Indication: GASTRIC CANCER
     Dates: start: 201902, end: 201904
  4. TEGAFUR/GIMERACIL/OTERACIL POTASSIUM [Suspect]
     Active Substance: GIMERACIL\OTERACIL\TEGAFUR
     Indication: GASTRIC CANCER
     Dosage: ONCE EVERY 3 WEEKS
     Dates: start: 201902, end: 201904

REACTIONS (3)
  - Nausea [Unknown]
  - Vomiting [Unknown]
  - Myelosuppression [Unknown]

NARRATIVE: CASE EVENT DATE: 2019
